FAERS Safety Report 6924626-6 (Version None)
Quarter: 2010Q3

REPORT INFORMATION
  Report Type: 
  Country: None (occurrence: None)
  Receive Date: 20100815
  Receipt Date: 20100603
  Transmission Date: 20110219
  Serious: No
  Sender: FDA-Public Use
  Company Number: A0862728A

PATIENT
  Age: 39 Year
  Sex: Female

DRUGS (5)
  1. TREXIMET [Suspect]
     Indication: MIGRAINE
     Dosage: 1TAB PER DAY
     Route: 048
     Dates: start: 20100602, end: 20100602
  2. ADVIL COLD AND SINUS [Concomitant]
  3. BENICAR [Concomitant]
  4. WELLBUTRIN [Concomitant]
  5. PRISTIQ [Concomitant]

REACTIONS (2)
  - ANXIETY [None]
  - MUSCLE TIGHTNESS [None]
